FAERS Safety Report 25444891 (Version 1)
Quarter: 2025Q2

REPORT INFORMATION
  Report Type: Spontaneous
  Country: US (occurrence: US)
  Receive Date: 20250617
  Receipt Date: 20250617
  Transmission Date: 20250716
  Serious: No
  Sender: ROCHE
  Company Number: US-ROCHE-10000310655

PATIENT
  Sex: Female

DRUGS (3)
  1. XOLAIR PFS [Suspect]
     Active Substance: OMALIZUMAB
     Indication: Asthma
     Route: 058
     Dates: start: 201807
  2. XOLAIR PFS [Suspect]
     Active Substance: OMALIZUMAB
  3. TINIDAZOLE [Suspect]
     Active Substance: TINIDAZOLE
     Indication: Product used for unknown indication
     Route: 065

REACTIONS (1)
  - Throat tightness [Unknown]
